FAERS Safety Report 14237762 (Version 1)
Quarter: 2017Q4

REPORT INFORMATION
  Report Type: Report from Study
  Country: None (occurrence: CA)
  Receive Date: 20171130
  Receipt Date: 20171130
  Transmission Date: 20180321
  Serious: Yes (Other)
  Sender: FDA-Public Use
  Company Number: CA-ABBVIE-17P-028-1927949-00

PATIENT
  Sex: Male

DRUGS (1)
  1. HUMIRA [Suspect]
     Active Substance: ADALIMUMAB
     Indication: PSORIATIC ARTHROPATHY
     Route: 058
     Dates: start: 20160726

REACTIONS (3)
  - Cardiac procedure complication [Unknown]
  - Arthralgia [Recovering/Resolving]
  - Cardiac perforation [Unknown]

NARRATIVE: CASE EVENT DATE: 2017
